FAERS Safety Report 9965818 (Version 1)
Quarter: 2014Q1

REPORT INFORMATION
  Report Type: Report from Study
  Country: US (occurrence: US)
  Receive Date: 20140305
  Receipt Date: 20140305
  Transmission Date: 20141002
  Serious: No
  Sender: FDA-Public Use
  Company Number: US-ABBVIE-13P-163-1124717-00

PATIENT
  Age: 44 Year
  Sex: Female

DRUGS (8)
  1. HUMIRA [Suspect]
     Indication: PSORIATIC ARTHROPATHY
     Dates: start: 20130708
  2. ZONISAMIDE [Concomitant]
     Indication: MIGRAINE
     Dosage: EVERY BEDTIME
  3. TRAMADOL [Concomitant]
     Indication: PSORIATIC ARTHROPATHY
     Dosage: 1 OR 2 EVERY BEDTIME AS NEEDED
  4. ALPRAZOLAM [Concomitant]
     Indication: MIGRAINE
     Dosage: 1/2 DAILY
  5. ALBUTEROL [Concomitant]
     Indication: ASTHMA
     Route: 055
  6. MVI [Concomitant]
     Indication: PRODUCT USED FOR UNKNOWN INDICATION
     Dosage: DAILY
  7. SULFA [Concomitant]
     Indication: PRODUCT USED FOR UNKNOWN INDICATION
  8. GABAPENTIN [Concomitant]
     Indication: PRODUCT USED FOR UNKNOWN INDICATION

REACTIONS (2)
  - Influenza like illness [Recovered/Resolved]
  - Back pain [Not Recovered/Not Resolved]
